FAERS Safety Report 15207203 (Version 1)
Quarter: 2018Q3

REPORT INFORMATION
  Report Type: Report from Study
  Country: IL (occurrence: IL)
  Receive Date: 20180727
  Receipt Date: 20180727
  Transmission Date: 20181010
  Serious: Yes (Hospitalization)
  Sender: FDA-Public Use
  Company Number: IL-ROCHE-2155753

PATIENT
  Age: 57 Year
  Sex: Female

DRUGS (3)
  1. PERJETA [Suspect]
     Active Substance: PERTUZUMAB
     Indication: BREAST CANCER
     Route: 065
  2. HERCEPTIN [Suspect]
     Active Substance: TRASTUZUMAB
     Indication: BREAST CANCER
     Route: 065
  3. TAXOL [Suspect]
     Active Substance: PACLITAXEL
     Indication: BREAST CANCER
     Route: 065

REACTIONS (33)
  - Aphthous ulcer [Unknown]
  - Arthralgia [Unknown]
  - Dysgeusia [Unknown]
  - Constipation [Unknown]
  - Odynophagia [Unknown]
  - Weight decreased [Unknown]
  - Psychomotor hyperactivity [Unknown]
  - Neuropathy peripheral [Unknown]
  - Disturbance in attention [Unknown]
  - Haemorrhoids [Unknown]
  - Rhinorrhoea [Unknown]
  - Radiation associated pain [Recovered/Resolved]
  - Wound [Recovered/Resolved]
  - Influenza like illness [Unknown]
  - Epistaxis [Unknown]
  - Alopecia [Unknown]
  - Tooth disorder [Unknown]
  - Diarrhoea [Unknown]
  - Onychomadesis [Unknown]
  - Feeding disorder [Unknown]
  - Pneumonia [Unknown]
  - Erythema [Recovered/Resolved]
  - Oedema [Recovered/Resolved]
  - Insomnia [Unknown]
  - Swelling [Unknown]
  - Dysphagia [Unknown]
  - Dehydration [Unknown]
  - Pain of skin [Unknown]
  - Ageusia [Unknown]
  - Nausea [Unknown]
  - Dry skin [Recovered/Resolved]
  - Fatigue [Unknown]
  - Gingival disorder [Unknown]
